FAERS Safety Report 6828559-5 (Version None)
Quarter: 2010Q3

REPORT INFORMATION
  Report Type: 
  Country: None (occurrence: None)
  Receive Date: 20100709
  Receipt Date: 20070212
  Transmission Date: 20110219
  Serious: No
  Sender: FDA-Public Use
  Company Number: US-PFIZER INC-2007013022

PATIENT
  Sex: Male
  Weight: 56.25 kg

DRUGS (3)
  1. CHANTIX [Suspect]
     Indication: SMOKING CESSATION THERAPY
     Dates: start: 20070101, end: 20070201
  2. ALPRAZOLAM [Concomitant]
     Indication: ANXIETY
  3. TYLENOL [Concomitant]

REACTIONS (2)
  - CHROMATURIA [None]
  - MALAISE [None]
